FAERS Safety Report 4805285-5 (Version None)
Quarter: 2005Q4

REPORT INFORMATION
  Report Type: 
  Country: None (occurrence: None)
  Receive Date: 20051017
  Receipt Date: 20051004
  Transmission Date: 20060501
  Serious: Yes (Other)
  Sender: FDA-Public Use
  Company Number: 2005136925

PATIENT
  Age: 22 Year
  Sex: Female
  Weight: 62.5964 kg

DRUGS (2)
  1. KAOPECTATE (BISMUTH SUBSALICYLATE) [Suspect]
     Indication: DIARRHOEA
     Dosage: 30 ML 2 TIMES, ORAL
     Route: 048
     Dates: start: 20050927, end: 20050927
  2. GLUCOSE/FRUCTOSE/PHOSPHORIC ACID (FRUCTOSE, GLUCOSE, PHOSPHORIC ACID) [Suspect]
     Indication: NAUSEA
     Dosage: 1 TABLESPOON 2 TIMES, ORAL
     Route: 048
     Dates: start: 20050927, end: 20050927

REACTIONS (3)
  - ABORTION SPONTANEOUS [None]
  - BLOOD HUMAN CHORIONIC GONADOTROPIN DECREASED [None]
  - DRUG EXPOSURE DURING PREGNANCY [None]
